FAERS Safety Report 6504713-7 (Version None)
Quarter: 2009Q4

REPORT INFORMATION
  Report Type: 
  Country: None (occurrence: None)
  Receive Date: 20091218
  Receipt Date: 20091116
  Transmission Date: 20100525
  Serious: No
  Sender: FDA-Public Use
  Company Number: A0817790A

PATIENT
  Sex: Male

DRUGS (6)
  1. PROMACTA [Suspect]
     Indication: IDIOPATHIC THROMBOCYTOPENIC PURPURA
     Dosage: 25MG PER DAY
     Route: 048
     Dates: start: 20090901
  2. OXYCODONE [Concomitant]
  3. VITAMINS [Concomitant]
  4. REYATAZ [Concomitant]
  5. NORVIR [Concomitant]
  6. TRUVADA [Concomitant]

REACTIONS (1)
  - SEXUAL DYSFUNCTION [None]
